FAERS Safety Report 21914813 (Version 2)
Quarter: 2023Q2

REPORT INFORMATION
  Report Type: Report from Study
  Country: GB (occurrence: GB)
  Receive Date: 20230126
  Receipt Date: 20230421
  Transmission Date: 20230722
  Serious: Yes (Other)
  Sender: FDA-Public Use
  Company Number: GB-002147023-NVSC2022GB193140

PATIENT
  Sex: Female

DRUGS (2)
  1. KESIMPTA [Suspect]
     Active Substance: OFATUMUMAB
     Indication: Multiple sclerosis
     Dosage: 20 MG, QW (INITIAL DOSING OF 20 MG BY SUBCUTANEOUS INJECTION AT WEEKS 0, 1, AND 2)
     Route: 058
     Dates: start: 20220819
  2. KESIMPTA [Suspect]
     Active Substance: OFATUMUMAB
     Dosage: 20 MG, QMO
     Route: 058

REACTIONS (17)
  - Optic neuritis [Unknown]
  - Visual impairment [Unknown]
  - Multiple sclerosis relapse [Unknown]
  - Influenza like illness [Recovered/Resolved]
  - Arthralgia [Unknown]
  - Pain in extremity [Unknown]
  - Malaise [Unknown]
  - Dizziness [Unknown]
  - Paraesthesia [Unknown]
  - Paraesthesia oral [Unknown]
  - Communication disorder [Unknown]
  - Heart rate decreased [Unknown]
  - Anaemia [Unknown]
  - Fatigue [Unknown]
  - Sensory disturbance [Unknown]
  - Lower respiratory tract infection [Recovered/Resolved]
  - Ear infection [Recovered/Resolved]

NARRATIVE: CASE EVENT DATE: 20221201
